FAERS Safety Report 7197215-9 (Version None)
Quarter: 2010Q4

REPORT INFORMATION
  Report Type: 
  Country: None (occurrence: None)
  Receive Date: 20101224
  Receipt Date: 20101220
  Transmission Date: 20110411
  Serious: Yes (Death, Hospitalization)
  Sender: FDA-Public Use
  Company Number: PHHY2010US86879

PATIENT
  Sex: Male

DRUGS (1)
  1. EXJADE [Suspect]
     Route: 048

REACTIONS (3)
  - CENTRAL VENOUS CATHETERISATION [None]
  - CHEST WALL ABSCESS [None]
  - DEATH [None]
